FAERS Safety Report 4918660-5 (Version None)
Quarter: 2006Q1

REPORT INFORMATION
  Report Type: 
  Country: None (occurrence: None)
  Receive Date: 20060222
  Receipt Date: 20060109
  Transmission Date: 20060701
  Serious: Yes (Hospitalization)
  Sender: FDA-Public Use
  Company Number: 2006AP00062

PATIENT
  Age: 1 Month
  Sex: Female
  Weight: 3 kg

DRUGS (7)
  1. MEROPEN [Suspect]
     Indication: MENINGITIS BACTERIAL
     Route: 041
     Dates: start: 20050825, end: 20050825
  2. MEROPEN [Suspect]
     Route: 041
     Dates: start: 20050818, end: 20050818
  3. MEROPEN [Suspect]
     Route: 041
     Dates: start: 20050819, end: 20050824
  4. VICCILIN [Suspect]
     Indication: MENINGITIS BACTERIAL
     Route: 065
     Dates: start: 20050816, end: 20050820
  5. VANCOMYCIN HYDROCHLORIDE [Suspect]
     Indication: MENINGITIS BACTERIAL
     Route: 041
     Dates: start: 20050820, end: 20050826
  6. VEEN 3G [Concomitant]
     Route: 041
     Dates: start: 20050816
  7. ROCEPHIN [Concomitant]
     Route: 041
     Dates: start: 20050825, end: 20050826

REACTIONS (2)
  - DRUG HYPERSENSITIVITY [None]
  - PERIANAL ABSCESS [None]
